FAERS Safety Report 25364409 (Version 1)
Quarter: 2025Q2

REPORT INFORMATION
  Report Type: Spontaneous
  Country: AR (occurrence: AR)
  Receive Date: 20250527
  Receipt Date: 20250527
  Transmission Date: 20250717
  Serious: Yes (Death)
  Sender: PFIZER
  Company Number: AR-PFIZER INC-202500107523

PATIENT
  Age: 85 Year
  Sex: Female

DRUGS (1)
  1. INLYTA [Suspect]
     Active Substance: AXITINIB
     Indication: Renal cancer
     Dates: start: 20240405, end: 202404

REACTIONS (1)
  - Death [Fatal]
